FAERS Safety Report 17984890 (Version 1)
Quarter: 2020Q3

REPORT INFORMATION
  Report Type: Spontaneous
  Country: MX (occurrence: MX)
  Receive Date: 20200706
  Receipt Date: 20200706
  Transmission Date: 20201103
  Serious: Yes (Death)
  Sender: FDA-Public Use
  Company Number: MX-SYNEX-T202003237

PATIENT
  Age: 78 Year
  Weight: 88 kg

DRUGS (2)
  1. INOMAX [Suspect]
     Active Substance: NITRIC OXIDE
     Indication: COVID-19
  2. INOMAX [Suspect]
     Active Substance: NITRIC OXIDE
     Indication: HYPOXIA
     Dosage: 20 PPM (INHALATION)
     Route: 055
     Dates: start: 20200627, end: 20200627

REACTIONS (3)
  - Product use in unapproved indication [Unknown]
  - Product use issue [Unknown]
  - Acute myocardial infarction [Fatal]

NARRATIVE: CASE EVENT DATE: 20200627
